FAERS Safety Report 7996972-9 (Version None)
Quarter: 2011Q4

REPORT INFORMATION
  Report Type: 
  Country: None (occurrence: None)
  Receive Date: 20111221
  Receipt Date: 20111213
  Transmission Date: 20120403
  Serious: Yes (Hospitalization)
  Sender: FDA-Public Use
  Company Number: PHHO2011JP020567

PATIENT
  Sex: Male
  Weight: 86 kg

DRUGS (7)
  1. CANDESARTAN CILEXETIL [Concomitant]
     Indication: HYPERTENSION
     Dosage: 12 MG, UNK
     Route: 048
     Dates: start: 20070217
  2. TASIGNA [Suspect]
     Indication: CHRONIC MYELOID LEUKAEMIA
     Dosage: UNK
     Route: 048
     Dates: start: 20080625, end: 20111205
  3. VOGLIBOSE [Concomitant]
     Indication: DIABETES MELLITUS
     Dosage: UNK
     Route: 048
     Dates: start: 20100730
  4. ACTOS [Concomitant]
     Indication: DIABETES MELLITUS
     Dosage: 30 MG, UNK
     Route: 048
     Dates: start: 20100730
  5. ALLOPURINOL [Concomitant]
     Indication: HYPERLIPIDAEMIA
     Dosage: 100 MG, UNK
     Dates: start: 20100730
  6. CALBLOCK [Concomitant]
     Indication: HYPERTENSION
     Dosage: 16 MG, UNK
     Route: 048
     Dates: start: 20070217
  7. FLIVAS [Concomitant]
     Indication: BENIGN PROSTATIC HYPERPLASIA
     Dosage: 50 MG, UNK
     Route: 048
     Dates: start: 20090117

REACTIONS (2)
  - CALCULUS URETERIC [None]
  - INTESTINAL OBSTRUCTION [None]
